FAERS Safety Report 25358492 (Version 2)
Quarter: 2025Q2

REPORT INFORMATION
  Report Type: Report from Study
  Country: US (occurrence: US)
  Receive Date: 20250526
  Receipt Date: 20250624
  Transmission Date: 20250717
  Serious: No
  Sender: MALLINCKRODT
  Company Number: US-MALLINCKRODT-MNK202502598

PATIENT
  Sex: Male
  Weight: 260 kg

DRUGS (1)
  1. CORTICOTROPIN [Suspect]
     Active Substance: CORTICOTROPIN
     Indication: Nephrotic syndrome
     Route: 058

REACTIONS (4)
  - Fear of injection [Unknown]
  - Insomnia [Unknown]
  - Injection site pain [Unknown]
  - Wrong technique in product usage process [Unknown]
